FAERS Safety Report 8043377-0 (Version None)
Quarter: 2012Q1

REPORT INFORMATION
  Report Type: 
  Country: None (occurrence: None)
  Receive Date: 20120112
  Receipt Date: 20111229
  Transmission Date: 20120608
  Serious: Yes (Other)
  Sender: FDA-Public Use
  Company Number: GB-BAUSCH-2012BL000132

PATIENT
  Age: 69 Year
  Sex: Female

DRUGS (8)
  1. PREDNISOLONE [Suspect]
     Dates: start: 20111026
  2. PREDNISOLONE [Suspect]
     Dates: start: 20111111
  3. CLARITHROMYCIN [Suspect]
     Indication: RESPIRATORY TRACT INFECTION
     Dates: start: 20111017
  4. AZITHROMYCIN [Suspect]
     Indication: RESPIRATORY TRACT INFECTION
     Dates: start: 20111024, end: 20111026
  5. PREDNISOLONE [Suspect]
     Indication: PRODUCT USED FOR UNKNOWN INDICATION
     Dates: start: 20111024
  6. CLARITHROMYCIN [Suspect]
     Dates: start: 20111111
  7. FOSTAIR [Concomitant]
     Indication: ASTHMA
  8. FLUTICASONE PROPIONATE [Suspect]
     Indication: ASTHMA
     Dates: start: 20110908

REACTIONS (6)
  - ORAL CANDIDIASIS [None]
  - RESPIRATORY TRACT INFECTION [None]
  - DYSPNOEA [None]
  - DRUG INEFFECTIVE [None]
  - CIRCULATORY COLLAPSE [None]
  - CONDITION AGGRAVATED [None]
